FAERS Safety Report 10219389 (Version 2)
Quarter: 2014Q2

REPORT INFORMATION
  Report Type: Spontaneous
  Country: US (occurrence: US)
  Receive Date: 20140605
  Receipt Date: 20140609
  Transmission Date: 20141212
  Serious: No
  Sender: FDA-Public Use
  Company Number: US-GILEAD-2014-0104275

PATIENT
  Age: 75 Year
  Sex: Male

DRUGS (13)
  1. LETAIRIS [Suspect]
     Indication: PULMONARY HYPERTENSION
     Dosage: 5 MG, QD
     Route: 065
     Dates: start: 20140311
  2. LETAIRIS [Suspect]
     Dosage: 5 MG, QD
     Dates: start: 20140311, end: 20140602
  3. ALPRAZOLAM [Concomitant]
  4. ALBUTEROL SULFATE [Concomitant]
  5. PRAVASTATIN [Concomitant]
  6. FUROSEMIDE [Concomitant]
  7. POTASSIUM [Concomitant]
  8. SPIRIVA [Concomitant]
  9. PEPCID                             /00706001/ [Concomitant]
  10. METOPROLOL [Concomitant]
  11. ADCIRCA [Concomitant]
  12. ASPIRIN [Concomitant]
  13. ADVAIR [Concomitant]

REACTIONS (3)
  - Paraesthesia [Not Recovered/Not Resolved]
  - Oedema peripheral [Not Recovered/Not Resolved]
  - Drug ineffective [Unknown]
